FAERS Safety Report 5404535-4 (Version None)
Quarter: 2007Q3

REPORT INFORMATION
  Report Type: 
  Country: None (occurrence: None)
  Receive Date: 20070802
  Receipt Date: 20070727
  Transmission Date: 20080115
  Serious: Yes (Other)
  Sender: FDA-Public Use
  Company Number: US-ROXANE LABORATORIES, INC-2007-DE-04481GD

PATIENT

DRUGS (1)
  1. NAPROXEN [Suspect]
     Indication: OSTEOARTHRITIS

REACTIONS (1)
  - PULMONARY EMBOLISM [None]
